FAERS Safety Report 25364613 (Version 4)
Quarter: 2025Q2

REPORT INFORMATION
  Report Type: Spontaneous
  Country: CN (occurrence: CN)
  Receive Date: 20250527
  Receipt Date: 20250618
  Transmission Date: 20250717
  Serious: Yes (Life-Threatening, Hospitalization, Other)
  Sender: PFIZER
  Company Number: CN-MLMSERVICE-20250519-PI511764-00270-1

PATIENT
  Age: 75 Year
  Sex: Male

DRUGS (1)
  1. METHYLPREDNISOLONE [Suspect]
     Active Substance: METHYLPREDNISOLONE
     Indication: Immunoglobulin G4 related disease

REACTIONS (7)
  - Nocardiosis [Recovered/Resolved]
  - Brain abscess [Recovered/Resolved]
  - Meningitis cryptococcal [Recovering/Resolving]
  - Cryptococcosis [Recovered/Resolved]
  - Coma [Recovered/Resolved]
  - Immunodeficiency [Unknown]
  - Off label use [Unknown]

NARRATIVE: CASE EVENT DATE: 20240701
